FAERS Safety Report 13703846 (Version 1)
Quarter: 2017Q2

REPORT INFORMATION
  Report Type: Spontaneous
  Country: US (occurrence: US)
  Receive Date: 20170629
  Receipt Date: 20170629
  Transmission Date: 20170830
  Serious: No
  Sender: FDA-Public Use
  Company Number: US-TARO-2016TAR00972

PATIENT
  Sex: Female

DRUGS (2)
  1. CLOTRIMAZOLE/BETAMETHASONE DIPROPIONATE CREAM USP 1%/0.05% [Suspect]
     Active Substance: BETAMETHASONE DIPROPIONATE\CLOTRIMAZOLE
     Dosage: UNK
     Route: 067
     Dates: start: 20161119, end: 20161119
  2. TERCONAZOLE VAGINAL CREAM 0.8% [Suspect]
     Active Substance: TERCONAZOLE

REACTIONS (5)
  - Vaginal haemorrhage [Unknown]
  - Application site pain [Unknown]
  - Wrong drug administered [Unknown]
  - Incorrect route of drug administration [Unknown]
  - Product label confusion [Unknown]

NARRATIVE: CASE EVENT DATE: 20161119
